FAERS Safety Report 12441069 (Version 2)
Quarter: 2018Q2

REPORT INFORMATION
  Report Type: Spontaneous
  Country: US (occurrence: US)
  Receive Date: 20160607
  Receipt Date: 20180409
  Transmission Date: 20180711
  Serious: Yes (Hospitalization)
  Sender: FDA-Public Use
  Company Number: US-ASTRAZENECA-2016SE57638

PATIENT
  Sex: Male
  Weight: 108.9 kg

DRUGS (1)
  1. BYDUREON [Suspect]
     Active Substance: EXENATIDE
     Indication: TYPE 2 DIABETES MELLITUS
     Dosage: 2 MG 4 COUNT, UNKNOWN
     Route: 065

REACTIONS (6)
  - Weight decreased [Recovered/Resolved]
  - Blood pressure decreased [Recovering/Resolving]
  - Product storage error [Unknown]
  - Dizziness [Unknown]
  - Decreased appetite [Recovering/Resolving]
  - Blood glucose decreased [Recovered/Resolved]
